FAERS Safety Report 25516660 (Version 1)
Quarter: 2025Q3

REPORT INFORMATION
  Report Type: Spontaneous
  Country: US (occurrence: US)
  Receive Date: 20250704
  Receipt Date: 20250704
  Transmission Date: 20251021
  Serious: No
  Sender: RADIUS PHARM
  Company Number: US-RADIUS HEALTH INC.-US-RADIUS-25045852

PATIENT
  Sex: Female

DRUGS (1)
  1. TYMLOS [Suspect]
     Active Substance: ABALOPARATIDE
     Indication: Product used for unknown indication
     Dosage: 80 MICROGRAM/ONCE A DAY
     Route: 058

REACTIONS (7)
  - Dysgeusia [Unknown]
  - Abdominal pain upper [Unknown]
  - Palpitations [Unknown]
  - Dizziness [Unknown]
  - Dizziness [Unknown]
  - Bone pain [Unknown]
  - Malaise [Unknown]
